FAERS Safety Report 23704235 (Version 3)
Quarter: 2025Q1

REPORT INFORMATION
  Report Type: Spontaneous
  Country: US (occurrence: US)
  Receive Date: 20240404
  Receipt Date: 20250225
  Transmission Date: 20250409
  Serious: Yes (Death, Other)
  Sender: PROCTER AND GAMBLE
  Company Number: US-PROCTER_AND_GAMBLE-PH24002952

PATIENT
  Age: 14 Year
  Sex: Male

DRUGS (2)
  1. DEXTROMETHORPHAN [Interacting]
     Active Substance: DEXTROMETHORPHAN
     Route: 048
  2. FLUOXETINE [Interacting]
     Active Substance: FLUOXETINE HYDROCHLORIDE
     Route: 048

REACTIONS (8)
  - Completed suicide [Fatal]
  - Serotonin syndrome [Fatal]
  - Substance-induced psychotic disorder [Fatal]
  - Drug interaction [Fatal]
  - Drug abuse [Fatal]
  - Toxicity to various agents [Fatal]
  - Compulsive sexual behaviour [Fatal]
  - Homicide [Fatal]
